FAERS Safety Report 21299028 (Version 20)
Quarter: 2023Q2

REPORT INFORMATION
  Report Type: Other
  Country: CA (occurrence: None)
  Receive Date: 20220906
  Receipt Date: 20230621
  Transmission Date: 20230722
  Serious: Yes (Other)
  Sender: FDA-Public Use
  Company Number: CA-ROCHE-1315824

PATIENT
  Age: 56 Year
  Sex: Female
  Weight: 70 kg

DRUGS (29)
  1. ACTEMRA [Suspect]
     Active Substance: TOCILIZUMAB
     Indication: Rheumatoid arthritis
     Route: 042
     Dates: start: 20110415, end: 20130624
  2. ACTEMRA [Suspect]
     Active Substance: TOCILIZUMAB
     Route: 042
     Dates: start: 20130731
  3. ACTEMRA [Suspect]
     Active Substance: TOCILIZUMAB
     Route: 042
     Dates: start: 20170503
  4. ACTEMRA [Suspect]
     Active Substance: TOCILIZUMAB
     Route: 042
     Dates: start: 20190322
  5. ACTEMRA [Suspect]
     Active Substance: TOCILIZUMAB
     Route: 042
     Dates: start: 2018
  6. ACTEMRA [Suspect]
     Active Substance: TOCILIZUMAB
     Route: 042
     Dates: start: 2018, end: 20190904
  7. ACTEMRA [Suspect]
     Active Substance: TOCILIZUMAB
     Route: 042
     Dates: start: 20191004, end: 20200824
  8. ACTEMRA [Suspect]
     Active Substance: TOCILIZUMAB
     Route: 042
     Dates: end: 2018
  9. ACTEMRA [Suspect]
     Active Substance: TOCILIZUMAB
     Route: 042
     Dates: start: 20200921, end: 20220615
  10. ACTEMRA [Suspect]
     Active Substance: TOCILIZUMAB
     Route: 042
     Dates: start: 20220913
  11. ACTEMRA [Suspect]
     Active Substance: TOCILIZUMAB
     Indication: Giant cell arteritis
     Route: 058
     Dates: start: 20201120, end: 20220103
  12. MYCOPHENOLATE MOFETIL [Suspect]
     Active Substance: MYCOPHENOLATE MOFETIL
     Indication: Giant cell arteritis
     Route: 065
  13. ARAVA [Suspect]
     Active Substance: LEFLUNOMIDE
     Indication: Product used for unknown indication
     Route: 065
  14. PREDNISONE [Suspect]
     Active Substance: PREDNISONE
     Indication: Product used for unknown indication
     Route: 065
     Dates: start: 20200927
  15. METHOTREXATE [Concomitant]
     Active Substance: METHOTREXATE
     Indication: Product used for unknown indication
     Route: 058
  16. VOLTAREN [Concomitant]
     Active Substance: DICLOFENAC SODIUM
     Indication: Product used for unknown indication
  17. NAPROXEN [Concomitant]
     Active Substance: NAPROXEN
     Indication: Product used for unknown indication
  18. HUMIRA [Concomitant]
     Active Substance: ADALIMUMAB
     Indication: Product used for unknown indication
  19. CALCIUM [Concomitant]
     Active Substance: CALCIUM
     Indication: Product used for unknown indication
  20. LINACLOTIDE [Concomitant]
     Active Substance: LINACLOTIDE
     Indication: Product used for unknown indication
  21. FOLIC ACID [Concomitant]
     Active Substance: FOLIC ACID
     Indication: Product used for unknown indication
  22. MAGNESIUM [Concomitant]
     Active Substance: MAGNESIUM
     Indication: Product used for unknown indication
  23. POTASSIUM [Concomitant]
     Active Substance: POTASSIUM
     Indication: Product used for unknown indication
  24. PRAVASTATIN [Concomitant]
     Active Substance: PRAVASTATIN
     Indication: Product used for unknown indication
  25. PROLIA [Concomitant]
     Active Substance: DENOSUMAB
     Indication: Product used for unknown indication
     Route: 058
  26. ZOPICLONE [Concomitant]
     Active Substance: ZOPICLONE
     Indication: Product used for unknown indication
  27. ASPIRIN [Concomitant]
     Active Substance: ASPIRIN
     Indication: Product used for unknown indication
  28. RESTASIS [Concomitant]
     Active Substance: CYCLOSPORINE
     Indication: Product used for unknown indication
  29. ARAVA [Concomitant]
     Active Substance: LEFLUNOMIDE
     Route: 065

REACTIONS (48)
  - Herpes zoster [Not Recovered/Not Resolved]
  - Infection susceptibility increased [Unknown]
  - Wound infection [Unknown]
  - Osteonecrosis of jaw [Unknown]
  - Osteonecrosis of jaw [Unknown]
  - Osteonecrosis [Unknown]
  - Peripheral venous disease [Not Recovered/Not Resolved]
  - Weight increased [Recovered/Resolved]
  - Gingivitis [Recovering/Resolving]
  - Weight decreased [Not Recovered/Not Resolved]
  - Tooth disorder [Unknown]
  - Blood pressure diastolic decreased [Unknown]
  - Blood pressure increased [Unknown]
  - Cardiovascular disorder [Unknown]
  - Dermatitis [Unknown]
  - Eczema [Unknown]
  - Heart rate decreased [Unknown]
  - Migraine [Not Recovered/Not Resolved]
  - Blood pressure diastolic abnormal [Unknown]
  - Blood pressure systolic increased [Unknown]
  - Blood pressure diastolic increased [Unknown]
  - Giant cell arteritis [Unknown]
  - Blood pressure fluctuation [Unknown]
  - Poor venous access [Unknown]
  - Blood pressure systolic abnormal [Unknown]
  - Headache [Recovering/Resolving]
  - Tooth infection [Unknown]
  - Toothache [Unknown]
  - Trigger finger [Unknown]
  - Back pain [Unknown]
  - Malaise [Not Recovered/Not Resolved]
  - Pain [Not Recovered/Not Resolved]
  - Myositis [Not Recovered/Not Resolved]
  - Infected bite [Unknown]
  - Injection site reaction [Not Recovered/Not Resolved]
  - Joint stiffness [Unknown]
  - Limb discomfort [Unknown]
  - Infection [Not Recovered/Not Resolved]
  - Wound infection [Recovered/Resolved]
  - Pain in jaw [Unknown]
  - Giant cell arteritis [Unknown]
  - Carpal tunnel syndrome [Unknown]
  - Rash [Recovering/Resolving]
  - Gait disturbance [Unknown]
  - Arthralgia [Unknown]
  - Alanine aminotransferase increased [Unknown]
  - Limb injury [Not Recovered/Not Resolved]
  - Localised infection [Not Recovered/Not Resolved]

NARRATIVE: CASE EVENT DATE: 20150701
